FAERS Safety Report 7208409-8 (Version None)
Quarter: 2011Q1

REPORT INFORMATION
  Report Type: 
  Country: None (occurrence: None)
  Receive Date: 20110104
  Receipt Date: 20101222
  Transmission Date: 20110831
  Serious: Yes (Hospitalization)
  Sender: FDA-Public Use
  Company Number: IT-ELI_LILLY_AND_COMPANY-IT201011005486

PATIENT
  Sex: Male

DRUGS (5)
  1. DEURSIL [Concomitant]
     Dosage: UNK, UNKNOWN
     Route: 065
  2. OXYCONTIN [Concomitant]
     Dosage: UNK, UNKNOWN
     Route: 065
  3. OMEPRAZOLE [Concomitant]
     Dosage: UNK, UNKNOWN
     Route: 065
  4. GEMZAR [Suspect]
     Indication: NASOPHARYNGEAL CANCER
     Dosage: 1700 MG, PER CYCLE
     Route: 042
     Dates: start: 20100507, end: 20100930
  5. NEURONTIN [Concomitant]
     Dosage: UNK, UNKNOWN
     Route: 065

REACTIONS (2)
  - ISCHAEMIC STROKE [None]
  - OFF LABEL USE [None]
